FAERS Safety Report 16206240 (Version 1)
Quarter: 2019Q2

REPORT INFORMATION
  Report Type: Spontaneous
  Country: US (occurrence: US)
  Receive Date: 20190416
  Receipt Date: 20190416
  Transmission Date: 20190711
  Serious: Yes (Hospitalization)
  Sender: FDA-Public Use
  Company Number: None

PATIENT
  Sex: Female

DRUGS (7)
  1. LEFLUNOMIDE, LEVOTHYROXIN [Concomitant]
  2. INSULIN, LANTUS [Concomitant]
  3. HUMIRA [Suspect]
     Active Substance: ADALIMUMAB
     Indication: RHEUMATOID ARTHRITIS
     Dosage: ?          OTHER FREQUENCY:Q 14 DAYS;?
     Route: 058
     Dates: start: 20181030
  4. ADMELOG SOLO, ATORVASTATIN [Concomitant]
  5. XARELTO [Concomitant]
     Active Substance: RIVAROXABAN
  6. METFORMIN, PREDNISONE [Concomitant]
  7. TRAMADOL, WARFARIN [Concomitant]

REACTIONS (1)
  - Palpitations [None]
